FAERS Safety Report 5905363-3 (Version None)
Quarter: 2008Q4

REPORT INFORMATION
  Report Type: 
  Country: None (occurrence: None)
  Receive Date: 20081001
  Receipt Date: 20080919
  Transmission Date: 20090506
  Serious: Yes (Other)
  Sender: FDA-Public Use
  Company Number: JP-PFIZER INC-2008079258

PATIENT
  Age: 55 Year
  Sex: Male

DRUGS (1)
  1. SOLU-MEDROL [Suspect]
     Indication: VISUAL FIELD DEFECT
     Dosage: TEXT:500 MG/DAY
     Route: 042
     Dates: start: 20080718, end: 20080901

REACTIONS (1)
  - ANGINA PECTORIS [None]
